FAERS Safety Report 6302085-4 (Version None)
Quarter: 2009Q3

REPORT INFORMATION
  Report Type: 
  Country: None (occurrence: None)
  Receive Date: 20090807
  Receipt Date: 20090727
  Transmission Date: 20100115
  Serious: Yes (Other)
  Sender: FDA-Public Use
  Company Number: US-ELI_LILLY_AND_COMPANY-US200904005330

PATIENT
  Sex: Male
  Weight: 95.238 kg

DRUGS (8)
  1. BYETTA [Suspect]
     Indication: TYPE 2 DIABETES MELLITUS
     Dosage: 5 UG, 2/D
     Route: 058
     Dates: start: 20070612, end: 20070802
  2. BYETTA [Suspect]
     Dosage: 10 UG, 2/D
     Route: 058
     Dates: start: 20070802
  3. COREG CR [Concomitant]
     Dosage: 40 MG, DAILY (1/D)
     Route: 065
  4. EXFORGE                            /01634301/ [Concomitant]
     Dosage: UNK, DAILY (1/D)
     Route: 065
  5. VYTORIN [Concomitant]
     Dosage: UNK, DAILY (1/D)
     Route: 065
  6. VASOTEC [Concomitant]
     Dosage: 10 MG, DAILY (1/D)
     Route: 065
  7. HYDROCHLOROTHIAZIDE [Concomitant]
     Dosage: 25 MG, DAILY (1/D)
     Route: 065
  8. DIABETA [Concomitant]
     Dosage: 10 MG, 2/D
     Route: 065

REACTIONS (2)
  - DIARRHOEA [None]
  - PANCREATITIS [None]
